FAERS Safety Report 24995899 (Version 3)
Quarter: 2025Q1

REPORT INFORMATION
  Report Type: Spontaneous
  Country: NL (occurrence: NL)
  Receive Date: 20250221
  Receipt Date: 20250327
  Transmission Date: 20250408
  Serious: Yes (Hospitalization, Other)
  Sender: MYLAN
  Company Number: NL-ABBVIE-6122934

PATIENT
  Age: 63 Year
  Sex: Male

DRUGS (15)
  1. ALLOPURINOL [Suspect]
     Active Substance: ALLOPURINOL
     Indication: Tumour lysis syndrome
  2. ALLOPURINOL [Suspect]
     Active Substance: ALLOPURINOL
     Indication: Prophylaxis
  3. ALLOPURINOL [Suspect]
     Active Substance: ALLOPURINOL
  4. PREDNISONE [Suspect]
     Active Substance: PREDNISONE
     Indication: Haemolytic anaemia
  5. VENETOCLAX [Suspect]
     Active Substance: VENETOCLAX
     Indication: Chronic lymphocytic leukaemia
  6. VENETOCLAX [Suspect]
     Active Substance: VENETOCLAX
  7. VENETOCLAX [Suspect]
     Active Substance: VENETOCLAX
  8. IBRUTINIB [Suspect]
     Active Substance: IBRUTINIB
     Indication: Chronic lymphocytic leukaemia
  9. IBRUTINIB [Suspect]
     Active Substance: IBRUTINIB
  10. METHYLPREDNISOLONE [Suspect]
     Active Substance: METHYLPREDNISOLONE
     Indication: Haemolytic anaemia
  11. RITUXIMAB [Suspect]
     Active Substance: RITUXIMAB
     Indication: Chronic lymphocytic leukaemia
     Dosage: UNK UNK, QW (WEEKLY)
     Dates: start: 202402
  12. RITUXIMAB [Suspect]
     Active Substance: RITUXIMAB
     Indication: Haemolytic anaemia
  13. RITUXIMAB [Suspect]
     Active Substance: RITUXIMAB
     Dosage: 800 MILLIGRAM, QW
     Dates: start: 202403
  14. FOLIC ACID [Suspect]
     Active Substance: FOLIC ACID
     Indication: Haemolytic anaemia
  15. RASBURICASE [Suspect]
     Active Substance: RASBURICASE
     Indication: Blood lactate dehydrogenase increased

REACTIONS (11)
  - Transient aphasia [Recovered/Resolved]
  - Facial paralysis [Recovered/Resolved]
  - Neurological decompensation [Recovered/Resolved]
  - Autoimmune haemolytic anaemia [Recovered/Resolved]
  - Nervous system disorder [Recovered/Resolved]
  - Chronic lymphocytic leukaemia recurrent [Recovering/Resolving]
  - Leukocytosis [Unknown]
  - Thrombocytopenia [Unknown]
  - Somnolence [Recovered/Resolved]
  - Tumour lysis syndrome [Recovered/Resolved]
  - Drug ineffective [Unknown]

NARRATIVE: CASE EVENT DATE: 20240101
